FAERS Safety Report 8012525-0 (Version None)
Quarter: 2011Q4

REPORT INFORMATION
  Report Type: 
  Country: None (occurrence: None)
  Receive Date: 20111229
  Receipt Date: 20111226
  Transmission Date: 20120403
  Serious: Yes (Hospitalization)
  Sender: FDA-Public Use
  Company Number: FR-BIOGENIDEC-2011BI048455

PATIENT
  Age: 44 Year
  Sex: Female

DRUGS (1)
  1. TYSABRI [Suspect]
     Indication: MULTIPLE SCLEROSIS
     Route: 042
     Dates: start: 20111208, end: 20111208

REACTIONS (5)
  - CHILLS [None]
  - PYREXIA [None]
  - HYPOTENSION [None]
  - RASH ERYTHEMATOUS [None]
  - PERIPHERAL COLDNESS [None]
